FAERS Safety Report 5520797-7 (Version None)
Quarter: 2007Q4

REPORT INFORMATION
  Report Type: 
  Country: None (occurrence: None)
  Receive Date: 20071116
  Receipt Date: 20071116
  Transmission Date: 20080405
  Serious: No
  Sender: FDA-Public Use
  Company Number: None

PATIENT
  Age: 81 Year

DRUGS (8)
  1. VANCOMYCIN HCL [Suspect]
     Dosage: 2GM X1 IV
     Route: 042
     Dates: start: 20070802, end: 20070802
  2. SODIUM CHLORIDE [Concomitant]
  3. VANCOMYCIN HCL [Concomitant]
  4. ZYVOX [Concomitant]
  5. PROTONIX [Concomitant]
  6. DEXTROSE [Concomitant]
  7. BENADRYL [Concomitant]
  8. ZOCOR [Concomitant]

REACTIONS (4)
  - ANXIETY [None]
  - BURNING SENSATION [None]
  - FLUSHING [None]
  - INFUSION RELATED REACTION [None]
